FAERS Safety Report 8586373-7 (Version None)
Quarter: 2012Q3

REPORT INFORMATION
  Report Type: 
  Country: None (occurrence: None)
  Receive Date: 20120810
  Receipt Date: 20120803
  Transmission Date: 20120928
  Serious: Yes (Other)
  Sender: FDA-Public Use
  Company Number: US-ROCHE-1099404

PATIENT
  Sex: Female

DRUGS (3)
  1. ACTONEL [Suspect]
     Indication: OSTEOPOROSIS
     Dates: start: 20060601, end: 20080201
  2. BONIVA [Suspect]
     Indication: OSTEOPOROSIS
     Dates: start: 20080201, end: 20110101
  3. FOSAMAX [Suspect]
     Indication: OSTEOPOROSIS
     Dates: start: 20000101, end: 20060601

REACTIONS (4)
  - FEMUR FRACTURE [None]
  - ANXIETY [None]
  - LOW TURNOVER OSTEOPATHY [None]
  - BONE DISORDER [None]
